FAERS Safety Report 10081783 (Version 1)
Quarter: 2014Q2

REPORT INFORMATION
  Report Type: Spontaneous
  Country: US (occurrence: US)
  Receive Date: 20140416
  Receipt Date: 20140416
  Transmission Date: 20141212
  Serious: No
  Sender: FDA-Public Use
  Company Number: US-009507513-1404USA009114

PATIENT
  Sex: Female

DRUGS (1)
  1. NUVARING [Suspect]
     Dosage: ONE RING INSERT FOR 3 WEEKS AND REMOVE FOR ONE WEEK
     Route: 067
     Dates: start: 20130416

REACTIONS (1)
  - Infection [Unknown]
